FAERS Safety Report 13539163 (Version 1)
Quarter: 2017Q2

REPORT INFORMATION
  Report Type: Report from Study
  Country: FR (occurrence: FR)
  Receive Date: 20170512
  Receipt Date: 20170512
  Transmission Date: 20170830
  Serious: Yes (Hospitalization, Other)
  Sender: FDA-Public Use
  Company Number: FR-BRISTOL-MYERS SQUIBB COMPANY-BMS-2017-040623

PATIENT
  Age: 63 Year
  Sex: Male
  Weight: 74 kg

DRUGS (32)
  1. VALSARTAN. [Concomitant]
     Active Substance: VALSARTAN
     Indication: HYPERTENSION
     Dosage: 160 MG, QD
     Route: 065
  2. DELURSAN [Concomitant]
     Active Substance: URSODIOL
     Indication: BILE DUCT OBSTRUCTION
     Dosage: 250 MG, QD
     Route: 065
  3. ALPRESS [Concomitant]
     Active Substance: PRAZOSIN
     Indication: HYPERTENSION
     Dosage: 1.5 MG, UNK
     Route: 065
  4. ZYLORIC [Concomitant]
     Active Substance: ALLOPURINOL
     Indication: HYPOURICAEMIA
     Dosage: 100 MG, QD
     Route: 065
  5. IPERTEN [Concomitant]
     Active Substance: MANIDIPINE
     Indication: HYPERTENSION
     Dosage: 10 MG, QD
     Route: 065
  6. PERFALGAN [Concomitant]
     Active Substance: ACETAMINOPHEN
     Indication: PAIN
     Dosage: 1000 MG, UNK
     Route: 065
     Dates: start: 20150103
  7. PERFALGAN [Concomitant]
     Active Substance: ACETAMINOPHEN
     Indication: PYREXIA
     Route: 065
  8. PROGRAF [Concomitant]
     Active Substance: TACROLIMUS\TACROLIMUS ANHYDROUS
     Indication: ADVERSE EVENT
     Dosage: 1 MG, QD
     Route: 065
     Dates: start: 20151216
  9. NEORAL [Concomitant]
     Active Substance: CYCLOSPORINE
     Indication: PRODUCT USED FOR UNKNOWN INDICATION
     Dosage: 10 MG, QD
     Route: 065
     Dates: start: 1991
  10. TEMERIT [Concomitant]
     Active Substance: NEBIVOLOL
     Indication: HYPERTENSION
     Dosage: 5 MG, QD
     Route: 065
  11. LASILIX                            /00032601/ [Concomitant]
     Active Substance: FUROSEMIDE
     Indication: POLYURIA
     Dosage: 125 MG, QD
     Route: 065
  12. CIALIS [Concomitant]
     Active Substance: TADALAFIL
     Indication: ERECTILE DYSFUNCTION
     Dosage: 10 MG, QD
     Route: 065
  13. MIRCERA [Concomitant]
     Active Substance: METHOXY POLYETHYLENE GLYCOL-EPOETIN BETA
     Indication: ANAEMIA
     Dosage: 0.075 MG, QD
     Route: 065
     Dates: start: 20140622
  14. INEXIUM                            /01479302/ [Concomitant]
     Active Substance: ESOMEPRAZOLE MAGNESIUM
     Indication: GASTROOESOPHAGEAL REFLUX DISEASE
     Dosage: 40 MG, QD
     Route: 065
     Dates: start: 201512
  15. NOVORAPID [Concomitant]
     Active Substance: INSULIN ASPART
     Indication: DIABETES MELLITUS
     Dosage: 8 IU, TID
     Route: 065
     Dates: start: 201512
  16. APROVEL [Concomitant]
     Active Substance: IRBESARTAN
     Indication: HYPERTENSION
     Dosage: 150 MG, QD
     Route: 065
     Dates: start: 20160401
  17. MOPRAL                             /00661201/ [Concomitant]
     Active Substance: OMEPRAZOLE SODIUM
     Indication: GASTROOESOPHAGEAL REFLUX DISEASE
     Dosage: 20 MG, QD
     Route: 065
  18. SPECIAFOLDINE [Concomitant]
     Active Substance: FOLIC ACID
     Indication: FOLATE DEFICIENCY
     Dosage: UNK
     Route: 065
     Dates: end: 20160504
  19. PARACETAMOL [Concomitant]
     Active Substance: ACETAMINOPHEN
     Indication: PAIN
     Dosage: 1000 MG, QID
     Route: 065
  20. AMLOROS [Concomitant]
     Indication: HYPERTENSION
     Dosage: UNK
     Route: 065
     Dates: start: 201512, end: 20160401
  21. NEBIVOLOL. [Concomitant]
     Active Substance: NEBIVOLOL
     Indication: HYPERTENSION
     Dosage: 2.5 MG, UNK
     Route: 065
     Dates: start: 201512
  22. DACLATASVIR DIHYDROCHLORIDE [Suspect]
     Active Substance: DACLATASVIR DIHYDROCHLORIDE
     Indication: HEPATITIS C
     Route: 065
  23. SOLUPRED                           /00016201/ [Concomitant]
     Active Substance: PREDNISOLONE
     Indication: PRODUCT USED FOR UNKNOWN INDICATION
     Dosage: 5 MG, UNK
     Route: 065
  24. SOVALDI [Concomitant]
     Active Substance: SOFOSBUVIR
     Indication: HEPATITIS C VIRUS TEST
     Dosage: 400 MG, UNK
     Route: 065
     Dates: start: 20140617, end: 20141208
  25. PRIMPERAN [Concomitant]
     Active Substance: METOCLOPRAMIDE HYDROCHLORIDE
     Indication: VOMITING
     Route: 065
  26. EPREX [Concomitant]
     Active Substance: ERYTHROPOIETIN
     Indication: ANAEMIA
     Dosage: UNK
     Route: 065
     Dates: start: 201512
  27. CELLCEPT [Concomitant]
     Active Substance: MYCOPHENOLATE MOFETIL\MYCOPHENOLATE MOFETIL HYDROCHLORIDE
     Indication: ADVERSE EVENT
     Dosage: 250 MG, BID
     Route: 065
  28. CORTANCYL [Concomitant]
     Active Substance: PREDNISONE
     Indication: ADVERSE EVENT
     Dosage: 5 MG, QD
     Route: 065
     Dates: start: 20151216
  29. TOCO [Concomitant]
     Active Substance: UNSPECIFIED INGREDIENT
     Indication: PRODUCT USED FOR UNKNOWN INDICATION
     Dosage: 500 MG, BID
     Route: 065
  30. EZETROL [Concomitant]
     Active Substance: EZETIMIBE
     Indication: HYPOLIPIDAEMIA
     Dosage: 10 MG, QD
     Route: 065
  31. TIORFAN [Concomitant]
     Active Substance: RACECADOTRIL
     Indication: DIARRHOEA
     Dosage: 100 MG, UNK
     Route: 065
  32. PRIMPERAN [Concomitant]
     Active Substance: METOCLOPRAMIDE HYDROCHLORIDE
     Indication: NAUSEA
     Dosage: 10 MG, UNK
     Route: 065
     Dates: start: 20150103

REACTIONS (4)
  - Hepatocellular carcinoma [Recovered/Resolved]
  - Ascites [Unknown]
  - Therapeutic embolisation [Unknown]
  - Laparoscopy [Unknown]

NARRATIVE: CASE EVENT DATE: 20161021
